FAERS Safety Report 21255394 (Version 1)
Quarter: 2022Q3

REPORT INFORMATION
  Report Type: Spontaneous
  Country: GB (occurrence: GB)
  Receive Date: 20220825
  Receipt Date: 20220825
  Transmission Date: 20221027
  Serious: Yes (Hospitalization, Other)
  Sender: FDA-Public Use
  Company Number: GB-TEVA-307300ISR

PATIENT
  Sex: Female

DRUGS (1)
  1. TRIMETHOPRIM [Suspect]
     Active Substance: TRIMETHOPRIM
     Indication: Acne
     Route: 065

REACTIONS (5)
  - Liver injury [Unknown]
  - Pyrexia [Unknown]
  - Pruritus [Unknown]
  - Exfoliative rash [Unknown]
  - Drug reaction with eosinophilia and systemic symptoms [Unknown]
